FAERS Safety Report 4907981-8 (Version None)
Quarter: 2006Q1

REPORT INFORMATION
  Report Type: 
  Country: None (occurrence: None)
  Receive Date: 20060207
  Receipt Date: 20060124
  Transmission Date: 20060701
  Serious: Yes (Other)
  Sender: FDA-Public Use
  Company Number: 2006-137773-NL

PATIENT
  Age: 47 Year
  Sex: Female
  Weight: 108 kg

DRUGS (17)
  1. REMERON [Suspect]
     Indication: ANXIETY
     Dosage: 45 MG DAILY, ORAL, REDUCED FROM ??MG TO 45 MG
     Route: 048
  2. REMERON [Suspect]
     Indication: DEPRESSION
     Dosage: 45 MG DAILY, ORAL, REDUCED FROM ??MG TO 45 MG
     Route: 048
  3. REMERON [Suspect]
     Indication: INSOMNIA
     Dosage: 45 MG DAILY, ORAL, REDUCED FROM ??MG TO 45 MG
     Route: 048
  4. REMERON [Suspect]
     Indication: ANXIETY
     Dosage: 15 MG DAILY ORAL, GRADUALY DECREASED TO 15 MG
     Route: 048
     Dates: start: 20050101, end: 20051018
  5. REMERON [Suspect]
     Indication: DEPRESSION
     Dosage: 15 MG DAILY ORAL, GRADUALY DECREASED TO 15 MG
     Route: 048
     Dates: start: 20050101, end: 20051018
  6. REMERON [Suspect]
     Indication: INSOMNIA
     Dosage: 15 MG DAILY ORAL, GRADUALY DECREASED TO 15 MG
     Route: 048
     Dates: start: 20050101, end: 20051018
  7. LITHIUM [Concomitant]
  8. ABILIFY [Concomitant]
  9. NEURONTIN [Concomitant]
  10. ESKALITH [Concomitant]
  11. KLONOPIN [Concomitant]
  12. NITRAZADON [Concomitant]
  13. LEXAPRO [Concomitant]
  14. COGENTIN [Concomitant]
  15. LOPRESSOR [Concomitant]
  16. ALLEGRA [Concomitant]
  17. TOPAMAX [Concomitant]

REACTIONS (5)
  - FATIGUE [None]
  - NEUTROPHIL COUNT DECREASED [None]
  - RED BLOOD CELL COUNT DECREASED [None]
  - WEIGHT INCREASED [None]
  - WHITE BLOOD CELL COUNT DECREASED [None]
